FAERS Safety Report 7016913-0 (Version None)
Quarter: 2010Q3

REPORT INFORMATION
  Report Type: 
  Country: None (occurrence: None)
  Receive Date: 20100927
  Receipt Date: 20100920
  Transmission Date: 20110219
  Serious: Yes (Other)
  Sender: FDA-Public Use
  Company Number: US-AMGEN-QUU434580

PATIENT
  Sex: Female
  Weight: 83.1 kg

DRUGS (13)
  1. ENBREL [Suspect]
     Indication: RHEUMATOID ARTHRITIS
     Route: 058
     Dates: start: 20070726
  2. DIOVAN [Concomitant]
     Dates: start: 20091110
  3. METHOTREXATE [Concomitant]
  4. FOLIC ACID [Concomitant]
  5. ASPIRIN [Concomitant]
  6. CALCIUM [Concomitant]
  7. FLAX SEED OIL [Concomitant]
  8. MTV [Concomitant]
  9. ETODOLAC [Concomitant]
  10. PLAQUENIL [Concomitant]
  11. NIACIN [Concomitant]
  12. TRAMADOL [Concomitant]
  13. VITAMIN D [Concomitant]

REACTIONS (9)
  - ANIMAL BITE [None]
  - CAPILLARY FRAGILITY [None]
  - CONTUSION [None]
  - GAIT DISTURBANCE [None]
  - INJURY [None]
  - LOSS OF CONSCIOUSNESS [None]
  - MUSCLE STRAIN [None]
  - SMEAR CERVIX ABNORMAL [None]
  - SPIDER VEIN [None]
